FAERS Safety Report 15643109 (Version 1)
Quarter: 2018Q4

REPORT INFORMATION
  Report Type: Spontaneous
  Country: US (occurrence: US)
  Receive Date: 20181121
  Receipt Date: 20181121
  Transmission Date: 20190205
  Serious: Yes (Other)
  Sender: FDA-Public Use
  Company Number: US-BAYER-2018-214643

PATIENT
  Sex: Male

DRUGS (3)
  1. PLAVIX [Suspect]
     Active Substance: CLOPIDOGREL BISULFATE
  2. BAYER LOW DOSE [Suspect]
     Active Substance: ASPIRIN
  3. APIXABAN [Suspect]
     Active Substance: APIXABAN

REACTIONS (2)
  - Atrial fibrillation [None]
  - Cerebrovascular accident [Unknown]
